FAERS Safety Report 13780030 (Version 2)
Quarter: 2017Q3

REPORT INFORMATION
  Report Type: Report from Study
  Country: US (occurrence: US)
  Receive Date: 20170723
  Receipt Date: 20170810
  Transmission Date: 20171127
  Serious: No
  Sender: FDA-Public Use
  Company Number: PHEH2017US022678

PATIENT
  Sex: Male

DRUGS (1)
  1. COSENTYX [Suspect]
     Active Substance: SECUKINUMAB
     Indication: PSORIASIS
     Dosage: 150 MG, QW
     Route: 058

REACTIONS (8)
  - Oropharyngeal pain [Unknown]
  - Ageusia [Unknown]
  - Incorrect dose administered [Unknown]
  - Aphonia [Unknown]
  - Productive cough [Unknown]
  - Dysphonia [Unknown]
  - Lip disorder [Unknown]
  - Plicated tongue [Unknown]
